FAERS Safety Report 8573088-4 (Version None)
Quarter: 2012Q3

REPORT INFORMATION
  Report Type: 
  Country: None (occurrence: None)
  Receive Date: 20120806
  Receipt Date: 20120725
  Transmission Date: 20120928
  Serious: Yes (Hospitalization)
  Sender: FDA-Public Use
  Company Number: US-ACTELION-A-NJ2012-69360

PATIENT
  Age: 63 Year
  Sex: Female

DRUGS (2)
  1. TRACLEER [Suspect]
     Indication: PULMONARY ARTERIAL HYPERTENSION
     Dosage: UNK
     Route: 048
     Dates: start: 20070801
  2. SILDENAFIL [Concomitant]

REACTIONS (4)
  - GASTROINTESTINAL DISORDER [None]
  - CLOSTRIDIAL INFECTION [None]
  - VOMITING [None]
  - DIARRHOEA [None]
